FAERS Safety Report 9453105 (Version 1)
Quarter: 2013Q3

REPORT INFORMATION
  Report Type: Spontaneous
  Country: CN (occurrence: None)
  Receive Date: 20130805
  Receipt Date: 20130805
  Transmission Date: 20140515
  Serious: Yes (Hospitalization, Congenital Anomaly)
  Sender: FDA-Public Use
  Company Number: 7226102

PATIENT
  Age: 4 Month
  Sex: Male

DRUGS (1)
  1. EUTHYROX [Suspect]
     Indication: THYROID NODULE REMOVAL
     Dosage: PRODUCT TAKEN BY MOTHER

REACTIONS (10)
  - Patent ductus arteriosus [None]
  - Atrial septal defect [None]
  - Neonatal respiratory distress syndrome [None]
  - Low birth weight baby [None]
  - Pulmonary hypertension [None]
  - Hyperbilirubinaemia neonatal [None]
  - Premature baby [None]
  - Constipation [None]
  - Exposure during breast feeding [None]
  - Maternal drugs affecting foetus [None]
